FAERS Safety Report 10594651 (Version 1)
Quarter: 2014Q4

REPORT INFORMATION
  Report Type: Spontaneous
  Country: US (occurrence: US)
  Receive Date: 20141120
  Receipt Date: 20141120
  Transmission Date: 20150529
  Serious: No
  Sender: FDA-Public Use
  Company Number: US-TEVA-486920USA

PATIENT
  Sex: Male

DRUGS (2)
  1. DIAZEPAM. [Suspect]
     Active Substance: DIAZEPAM
     Indication: NEURALGIA
  2. DIAZEPAM. [Suspect]
     Active Substance: DIAZEPAM
     Indication: COSTOCHONDRITIS
     Dates: start: 2009

REACTIONS (4)
  - Dizziness [Unknown]
  - Product substitution issue [Unknown]
  - Nausea [Unknown]
  - Drug ineffective [Unknown]

NARRATIVE: CASE EVENT DATE: 2009
